FAERS Safety Report 6907655-8 (Version None)
Quarter: 2010Q3

REPORT INFORMATION
  Report Type: 
  Country: None (occurrence: None)
  Receive Date: 20100802
  Receipt Date: 20100722
  Transmission Date: 20110219
  Serious: Yes (Other)
  Sender: FDA-Public Use
  Company Number: IDA-00381

PATIENT
  Age: 74 Year
  Sex: Male

DRUGS (2)
  1. PROPRANOLOL [Suspect]
     Indication: HYPERTHYROIDISM
  2. CARBIMAZOLE [Suspect]
     Indication: HYPERTHYROIDISM

REACTIONS (10)
  - ASPIRATION [None]
  - ASTHENIA [None]
  - CACHEXIA [None]
  - COUGH [None]
  - DEHYDRATION [None]
  - DYSPHAGIA [None]
  - DYSPHONIA [None]
  - HEPATIC FUNCTION ABNORMAL [None]
  - HYPERTHYROIDISM [None]
  - HYPOREFLEXIA [None]
